FAERS Safety Report 5565254-7 (Version None)
Quarter: 2007Q4

REPORT INFORMATION
  Report Type: 
  Country: None (occurrence: None)
  Receive Date: 20071218
  Receipt Date: 20071213
  Transmission Date: 20080405
  Serious: Yes (Death, Other)
  Sender: FDA-Public Use
  Company Number: JP-SANOFI-SYNTHELABO-F01200701678

PATIENT
  Sex: Male

DRUGS (8)
  1. AVASTIN [Suspect]
     Route: 041
     Dates: start: 20070918, end: 20070918
  2. FLUOROURACIL [Suspect]
     Route: 041
     Dates: end: 20070919
  3. ISOVORIN [Suspect]
     Route: 041
     Dates: start: 20070917, end: 20070917
  4. ELPLAT [Suspect]
     Indication: COLON CANCER METASTATIC
     Route: 041
     Dates: start: 20070917, end: 20070917
  5. URSO 250 [Concomitant]
     Dates: start: 20070806
  6. BUP-4 [Concomitant]
     Dates: start: 20070806
  7. CERNILTON [Concomitant]
     Dates: start: 20070806
  8. FLIVAS [Concomitant]
     Dates: start: 20070806

REACTIONS (2)
  - CARDIAC FAILURE [None]
  - VOMITING [None]
